FAERS Safety Report 7793724-X (Version None)
Quarter: 2011Q4

REPORT INFORMATION
  Report Type: 
  Country: None (occurrence: None)
  Receive Date: 20111003
  Receipt Date: 20110923
  Transmission Date: 20120403
  Serious: Yes (Other)
  Sender: FDA-Public Use
  Company Number: US-ABBOTT-11P-163-0857912-00

PATIENT
  Sex: Female
  Weight: 2.86 kg

DRUGS (2)
  1. KALETRA [Suspect]
     Indication: MATERNAL EXPOSURE DURING PREGNANCY
     Route: 064
     Dates: start: 20110304
  2. COMBIVIR [Concomitant]
     Indication: MATERNAL EXPOSURE DURING PREGNANCY
     Route: 064
     Dates: start: 20110304

REACTIONS (4)
  - MATERNAL EXPOSURE DURING PREGNANCY [None]
  - MATERNAL DRUGS AFFECTING FOETUS [None]
  - CHEST WALL MASS [None]
  - MASS [None]
